FAERS Safety Report 10262275 (Version 1)
Quarter: 2014Q2

REPORT INFORMATION
  Report Type: Spontaneous
  Country: US (occurrence: US)
  Receive Date: 20140626
  Receipt Date: 20140626
  Transmission Date: 20141212
  Serious: Yes (Hospitalization)
  Sender: FDA-Public Use
  Company Number: US-FRI-1000068410

PATIENT
  Age: 71 Year
  Sex: Female

DRUGS (5)
  1. LINZESS [Suspect]
     Indication: CONSTIPATION
     Dosage: 145 MCG
     Route: 048
     Dates: start: 20131025
  2. SIMVASTATIN [Concomitant]
  3. XANAX [Concomitant]
     Indication: ANXIETY
  4. METOPROLOL [Concomitant]
  5. CIPRO [Concomitant]
     Dates: start: 20140617

REACTIONS (1)
  - Blood sodium decreased [Not Recovered/Not Resolved]
